FAERS Safety Report 4686391-5 (Version None)
Quarter: 2005Q2

REPORT INFORMATION
  Report Type: 
  Country: None (occurrence: None)
  Receive Date: 20050609
  Receipt Date: 20050506
  Transmission Date: 20051028
  Serious: Yes (Other)
  Sender: FDA-Public Use
  Company Number: JP-ROCHE-404122

PATIENT
  Age: 41 Year
  Sex: Female

DRUGS (5)
  1. TAMIFLU [Suspect]
     Indication: INFLUENZA
     Route: 048
     Dates: start: 20050413, end: 20050415
  2. HUSCODE [Concomitant]
     Route: 048
     Dates: start: 20050411, end: 20050415
  3. PASETOCIN [Concomitant]
     Route: 048
     Dates: start: 20050411, end: 20050415
  4. KENTAN [Concomitant]
     Route: 048
     Dates: start: 20050411, end: 20050415
  5. GLORIAMIN [Concomitant]
     Dates: start: 20050411, end: 20050415

REACTIONS (8)
  - ARTHRALGIA [None]
  - BACK PAIN [None]
  - DECREASED ACTIVITY [None]
  - GROIN PAIN [None]
  - MALAISE [None]
  - NAUSEA [None]
  - PAIN IN EXTREMITY [None]
  - RASH [None]
